FAERS Safety Report 7620368-2 (Version None)
Quarter: 2011Q3

REPORT INFORMATION
  Report Type: 
  Country: None (occurrence: None)
  Receive Date: 20110718
  Receipt Date: 20110718
  Transmission Date: 20111222
  Serious: Yes (Hospitalization, Other)
  Sender: FDA-Public Use
  Company Number: None

PATIENT
  Age: 38 Year
  Sex: Male
  Weight: 79.378 kg

DRUGS (1)
  1. PREDNISONE [Suspect]
     Indication: INFLAMMATION
     Dosage: 40 MG
     Route: 048
     Dates: start: 20110613, end: 20110621

REACTIONS (5)
  - HALLUCINATION [None]
  - DISTURBANCE IN ATTENTION [None]
  - MENTAL STATUS CHANGES [None]
  - PRODUCT QUALITY ISSUE [None]
  - PSYCHOTIC DISORDER [None]
